FAERS Safety Report 9676127 (Version 1)
Quarter: 2013Q4

REPORT INFORMATION
  Report Type: Spontaneous
  Country: RS (occurrence: RS)
  Receive Date: 20131107
  Receipt Date: 20131107
  Transmission Date: 20140711
  Serious: Yes (Other)
  Sender: FDA-Public Use
  Company Number: RS-ACTAVIS-2013-19958

PATIENT
  Age: 39 Year
  Sex: Female
  Weight: 67 kg

DRUGS (1)
  1. GENTAMICIN [Suspect]
     Indication: UPPER RESPIRATORY TRACT INFECTION
     Dosage: 120 MG, SINGLE
     Route: 042
     Dates: start: 20130827, end: 20130827

REACTIONS (2)
  - Choking [Recovered/Resolved]
  - Pruritus [Recovered/Resolved]
